FAERS Safety Report 4544870-5 (Version None)
Quarter: 2005Q1

REPORT INFORMATION
  Report Type: 
  Country: None (occurrence: None)
  Receive Date: 20050103
  Receipt Date: 20050103
  Transmission Date: 20050727
  Serious: Yes (Life-Threatening, Hospitalization)
  Sender: FDA-Public Use
  Company Number: None

PATIENT
  Sex: Female

DRUGS (1)
  1. VALDECOXIB [Suspect]
     Indication: PAIN
     Dosage: 10 MG   ONCE DAILY   ORAL
     Route: 048
     Dates: start: 20040825, end: 20040911

REACTIONS (1)
  - TOXIC EPIDERMAL NECROLYSIS [None]
